FAERS Safety Report 16693335 (Version 2)
Quarter: 2019Q3

REPORT INFORMATION
  Report Type: Report from Study
  Country: US (occurrence: US)
  Receive Date: 20190812
  Receipt Date: 20190814
  Transmission Date: 20191004
  Serious: Yes (Other)
  Sender: FDA-Public Use
  Company Number: US-PFIZER INC-2019342332

PATIENT
  Age: 18 Year
  Sex: Male

DRUGS (8)
  1. MORPHINE SULFATE. [Suspect]
     Active Substance: MORPHINE SULFATE
     Indication: PREMEDICATION
  2. FENTANYL CITRATE. [Suspect]
     Active Substance: FENTANYL CITRATE
     Indication: ANAESTHESIA
     Dosage: 0.8 MG/KG, UNK
  3. PROPOFOL. [Suspect]
     Active Substance: PROPOFOL
     Indication: SEDATION
     Dosage: 0.12 MG/KG, UNK (0.12 MG/KG ?/MIN, INFUSION)
     Route: 042
  4. FENTANYL CITRATE. [Suspect]
     Active Substance: FENTANYL CITRATE
     Dosage: 1.5 UG/KG, UNK (TOTAL)
  5. LORAZEPAM. [Suspect]
     Active Substance: LORAZEPAM
     Indication: PREMEDICATION
     Dosage: 2 MG, UNK
     Route: 042
  6. MORPHINE SULFATE. [Suspect]
     Active Substance: MORPHINE SULFATE
     Indication: RADIUS FRACTURE
     Dosage: 8 MG, UNK
     Route: 042
  7. FENTANYL CITRATE. [Suspect]
     Active Substance: FENTANYL CITRATE
     Dosage: 0.8 UG/KG, UNK BOLUS
  8. PROPOFOL. [Suspect]
     Active Substance: PROPOFOL
     Indication: ANAESTHESIA
     Dosage: 0.8 MG/KG, (1 MINUTE LATER)
     Route: 040

REACTIONS (3)
  - Hypoxia [Recovering/Resolving]
  - Apnoea [Recovering/Resolving]
  - Overdose [Unknown]
